FAERS Safety Report 16069856 (Version 1)
Quarter: 2019Q1

REPORT INFORMATION
  Report Type: Spontaneous
  Country: US (occurrence: US)
  Receive Date: 20190314
  Receipt Date: 20190314
  Transmission Date: 20190418
  Serious: No
  Sender: FDA-Public Use
  Company Number: US-TEVA-2019-US-1016310

PATIENT
  Sex: Female
  Weight: 48.53 kg

DRUGS (1)
  1. AZITHROMYCIN TEVA [Suspect]
     Active Substance: AZITHROMYCIN
     Indication: SINUSITIS
     Dosage: TABLETS THE FIRST DAY AND 1 TABLET DAILY FOR 4 MORE DAYS

REACTIONS (2)
  - Heart rate irregular [Not Recovered/Not Resolved]
  - Myalgia [Not Recovered/Not Resolved]
